FAERS Safety Report 12534939 (Version 1)
Quarter: 2016Q3

REPORT INFORMATION
  Report Type: Spontaneous
  Country: US (occurrence: US)
  Receive Date: 20160707
  Receipt Date: 20160707
  Transmission Date: 20161109
  Serious: Yes (Other)
  Sender: FDA-Public Use
  Company Number: US-009507513-1606USA013586

PATIENT
  Age: 78 Year
  Sex: Male
  Weight: 61.22 kg

DRUGS (3)
  1. TOPROL XL [Concomitant]
     Active Substance: METOPROLOL SUCCINATE
  2. METOPROLOL. [Concomitant]
     Active Substance: METOPROLOL
  3. DULERA [Suspect]
     Active Substance: FORMOTEROL FUMARATE DIHYDRATE\MOMETASONE FUROATE
     Indication: RESPIRATORY TRACT CONGESTION
     Dosage: 2 PUFFS DAILY, 200 MICROGRAMS
     Route: 048
     Dates: start: 20160101

REACTIONS (4)
  - Inappropriate schedule of drug administration [Unknown]
  - Oesophageal candidiasis [Unknown]
  - Incorrect route of drug administration [Unknown]
  - Oral candidiasis [Unknown]

NARRATIVE: CASE EVENT DATE: 2016
